FAERS Safety Report 9760182 (Version 2)
Quarter: 2015Q3

REPORT INFORMATION
  Report Type: Spontaneous
  Country: US (occurrence: US)
  Receive Date: 20131216
  Receipt Date: 20150805
  Transmission Date: 20151125
  Serious: Yes (Other)
  Sender: FDA-Public Use
  Company Number: US-GILEAD-2010-0026630

PATIENT
  Age: 77 Year
  Sex: Male

DRUGS (11)
  1. ALLOPURINOL. [Concomitant]
     Active Substance: ALLOPURINOL
  2. LETAIRIS [Suspect]
     Active Substance: AMBRISENTAN
     Indication: PULMONARY ARTERIAL HYPERTENSION
     Route: 048
     Dates: start: 20090319, end: 20100113
  3. ZETIA [Concomitant]
     Active Substance: EZETIMIBE
  4. PREDNISONE. [Concomitant]
     Active Substance: PREDNISONE
  5. DIAMOX SEQUELS [Concomitant]
     Active Substance: ACETAZOLAMIDE
  6. ATENOLOL. [Concomitant]
     Active Substance: ATENOLOL
  7. CALCIUM [Concomitant]
     Active Substance: CALCIUM
  8. TRICOR [Concomitant]
     Active Substance: FENOFIBRATE
  9. PLAVIX [Concomitant]
     Active Substance: CLOPIDOGREL BISULFATE
  10. NITROBID [Concomitant]
  11. ASPIRIN. [Concomitant]
     Active Substance: ASPIRIN

REACTIONS (1)
  - Drug ineffective [Unknown]
